FAERS Safety Report 13265172 (Version 2)
Quarter: 2017Q1

REPORT INFORMATION
  Report Type: Spontaneous
  Country: GR (occurrence: GR)
  Receive Date: 20170223
  Receipt Date: 20170309
  Transmission Date: 20170428
  Serious: Yes (Life-Threatening)
  Sender: FDA-Public Use
  Company Number: GR-SA-2017SA023951

PATIENT
  Age: 62 Year
  Sex: Male

DRUGS (11)
  1. TOUJEO [Suspect]
     Active Substance: INSULIN GLARGINE
     Dosage: DOSE- 300 UNITS/ML X 40-50 UNITS A DAY
     Route: 058
  2. DEXAMETHASONE. [Concomitant]
     Active Substance: DEXAMETHASONE
  3. SOLOSTAR [Concomitant]
     Active Substance: DEVICE
  4. APIDRA [Suspect]
     Active Substance: INSULIN GLULISINE
     Dosage: DOSE:20 UNIT(S)
     Route: 058
     Dates: start: 20170208
  5. SOLOSTAR [Concomitant]
     Active Substance: DEVICE
     Dates: start: 20170208
  6. NEXIUM [Concomitant]
     Active Substance: ESOMEPRAZOLE MAGNESIUM
  7. TOUJEO [Suspect]
     Active Substance: INSULIN GLARGINE
     Dosage: DOSE:60 UNIT(S)
     Route: 058
     Dates: start: 20170208
  8. OLARTAN PLUS [Concomitant]
  9. APIDRA [Suspect]
     Active Substance: INSULIN GLULISINE
     Dosage: DOSE AND FREQUENCY- 10-15 UNITS/MEAL
     Route: 058
  10. CARVEPEN [Concomitant]
     Active Substance: CARVEDILOL
     Dosage: 12.5X0.5+0.5
  11. KEPPRA [Concomitant]
     Active Substance: LEVETIRACETAM

REACTIONS (3)
  - Off label use [Unknown]
  - Hypothalamo-pituitary disorder [Unknown]
  - Hyperglycaemia [Recovered/Resolved]

NARRATIVE: CASE EVENT DATE: 20170208
